FAERS Safety Report 25059516 (Version 1)
Quarter: 2025Q1

REPORT INFORMATION
  Report Type: Spontaneous
  Country: US (occurrence: None)
  Receive Date: 20250310
  Receipt Date: 20250310
  Transmission Date: 20250409
  Serious: Yes (Hospitalization)
  Sender: FDA-CTU
  Company Number: None

PATIENT
  Sex: Male

DRUGS (1)
  1. PURIXAN [Suspect]
     Active Substance: MERCAPTOPURINE
     Indication: Leukaemia
     Dosage: FREQUENCY : DAILY;?
     Route: 048

REACTIONS (2)
  - Full blood count abnormal [None]
  - Pyrexia [None]

NARRATIVE: CASE EVENT DATE: 20150204
